FAERS Safety Report 8100746-8 (Version None)
Quarter: 2012Q1

REPORT INFORMATION
  Report Type: 
  Country: None (occurrence: None)
  Receive Date: 20120131
  Receipt Date: 20120127
  Transmission Date: 20120608
  Serious: Yes (Life-Threatening)
  Sender: FDA-Public Use
  Company Number: IT-ASTRAZENECA-2012SE05752

PATIENT
  Sex: Female

DRUGS (3)
  1. SEROQUEL [Suspect]
     Indication: BIPOLAR DISORDER
     Route: 048
     Dates: start: 20120118, end: 20120118
  2. EFFEXOR [Concomitant]
     Indication: MAJOR DEPRESSION
     Route: 048
     Dates: start: 20111024, end: 20120118
  3. CLONAZEPAM [Concomitant]
     Indication: EPILEPSY
     Dosage: ORAL DROPS 2.5 MG/ML, ONE DOSE UNIT
     Route: 048
     Dates: start: 20120116, end: 20120118

REACTIONS (4)
  - CHEST PAIN [None]
  - LARYNGEAL OEDEMA [None]
  - RESPIRATORY FATIGUE [None]
  - TREMOR [None]
